FAERS Safety Report 17736082 (Version 1)
Quarter: 2020Q2

REPORT INFORMATION
  Report Type: Spontaneous
  Country: US (occurrence: US)
  Receive Date: 20200501
  Receipt Date: 20200501
  Transmission Date: 20200714
  Serious: No
  Sender: FDA-Public Use
  Company Number: US-TEVA-2020-US-1228818

PATIENT
  Sex: Male

DRUGS (2)
  1. TADALAFIL TEVA [Suspect]
     Active Substance: TADALAFIL
     Route: 065
  2. TADALAFIL TEVA [Suspect]
     Active Substance: TADALAFIL
     Route: 065

REACTIONS (1)
  - Therapeutic product effect incomplete [Unknown]
